FAERS Safety Report 7573410-1 (Version None)
Quarter: 2011Q2

REPORT INFORMATION
  Report Type: 
  Country: None (occurrence: None)
  Receive Date: 20110627
  Receipt Date: 20110419
  Transmission Date: 20111010
  Serious: No
  Sender: FDA-Public Use
  Company Number: A0923591A

PATIENT
  Age: 31 Year
  Sex: Female

DRUGS (3)
  1. BENADRYL [Concomitant]
  2. PHENOBARBITAL [Concomitant]
  3. LAMICTAL [Suspect]
     Dosage: 200MG PER DAY
     Route: 048
     Dates: start: 20110301

REACTIONS (2)
  - LOCAL SWELLING [None]
  - NONSPECIFIC REACTION [None]
